FAERS Safety Report 16230289 (Version 2)
Quarter: 2019Q2

REPORT INFORMATION
  Report Type: Spontaneous
  Country: US (occurrence: US)
  Receive Date: 20190423
  Receipt Date: 20190514
  Transmission Date: 20190711
  Serious: Yes (Other)
  Sender: FDA-Public Use
  Company Number: US-AMREGENT-20190772

PATIENT
  Age: 36 Year
  Sex: Female

DRUGS (5)
  1. WELLBUTRIN SR [Concomitant]
     Active Substance: BUPROPION HYDROCHLORIDE
     Dosage: 150 MG TWICE A DAY
     Route: 065
     Dates: start: 20190319
  2. INJECTAFER [Suspect]
     Active Substance: FERRIC CARBOXYMALTOSE
     Dosage: 750 MG
     Route: 042
     Dates: start: 20190319, end: 20190319
  3. VITAMIN D [Concomitant]
     Active Substance: VITAMIN D NOS
     Dosage: 50000 U WEEKLY
     Route: 065
     Dates: start: 20190319
  4. AMLODIPINE [Concomitant]
     Active Substance: AMLODIPINE BESYLATE
     Dosage: 10 MG DAILY
     Route: 048
  5. IBUPROFEN. [Concomitant]
     Active Substance: IBUPROFEN
     Dosage: 800 MG THREE TIMES DAILY PRN
     Route: 048

REACTIONS (1)
  - Blindness transient [Unknown]

NARRATIVE: CASE EVENT DATE: 20190415
